FAERS Safety Report 10213162 (Version 1)
Quarter: 2014Q2

REPORT INFORMATION
  Report Type: Report from Study
  Country: US (occurrence: US)
  Receive Date: 20140603
  Receipt Date: 20140603
  Transmission Date: 20141212
  Serious: Yes (Other)
  Sender: FDA-Public Use
  Company Number: US-BIOGENIDEC-2014BI052229

PATIENT
  Sex: Female

DRUGS (8)
  1. TYSABRI [Suspect]
     Indication: MULTIPLE SCLEROSIS
     Route: 042
     Dates: start: 20081017, end: 20111107
  2. TYSABRI [Suspect]
     Indication: MULTIPLE SCLEROSIS
     Route: 042
     Dates: start: 20120717, end: 20121113
  3. ADVIL [Concomitant]
  4. AUBAGIO [Concomitant]
  5. B COMPLEX [Concomitant]
     Dosage: DOSE UNIT:
  6. CYMBALTA [Concomitant]
  7. LEVOTHYROXINE SODIUM [Concomitant]
  8. VITAMIN E [Concomitant]

REACTIONS (2)
  - Lung lobectomy [Recovered/Resolved]
  - Shoulder arthroplasty [Recovered/Resolved]
